FAERS Safety Report 11661504 (Version 1)
Quarter: 2015Q4

REPORT INFORMATION
  Report Type: Spontaneous
  Country: GB (occurrence: GB)
  Receive Date: 20151026
  Receipt Date: 20151026
  Transmission Date: 20160304
  Serious: Yes (Hospitalization)
  Sender: FDA-Public Use
  Company Number: GB-TEVA-602147ACC

PATIENT
  Age: 82 Year
  Sex: Male
  Weight: 60 kg

DRUGS (14)
  1. DOCUSATE [Concomitant]
     Active Substance: DOCUSATE
  2. NYSTATIN. [Concomitant]
     Active Substance: NYSTATIN
  3. WARFARIN [Suspect]
     Active Substance: WARFARIN
  4. AMOXICILLIN. [Concomitant]
     Active Substance: AMOXICILLIN
  5. ATORVASTATIN [Concomitant]
     Active Substance: ATORVASTATIN
  6. CODEINE [Concomitant]
     Active Substance: CODEINE
  7. FUROSEMIDE. [Concomitant]
     Active Substance: FUROSEMIDE
  8. PARACETAMOL [Concomitant]
     Active Substance: ACETAMINOPHEN
  9. SENNA [Concomitant]
     Active Substance: SENNA LEAF\SENNOSIDES\SENNOSIDES A AND B
  10. WARFARIN [Suspect]
     Active Substance: WARFARIN
     Indication: ATRIAL FIBRILLATION
     Dosage: 1 MILLIGRAM DAILY;
     Route: 048
     Dates: start: 2011, end: 20151002
  11. ASPIRIN. [Suspect]
     Active Substance: ASPIRIN
     Indication: HEART VALVE REPLACEMENT
     Dosage: 75 MILLIGRAM DAILY;
     Route: 048
     Dates: end: 20151002
  12. ASPIRIN. [Suspect]
     Active Substance: ASPIRIN
  13. AMLODIPINE [Concomitant]
     Active Substance: AMLODIPINE BESYLATE
  14. FINASTERIDE. [Concomitant]
     Active Substance: FINASTERIDE

REACTIONS (8)
  - Hypotension [Unknown]
  - Gastrointestinal ulcer [Unknown]
  - Gastrointestinal haemorrhage [Recovering/Resolving]
  - Dyspnoea [Unknown]
  - Balance disorder [Unknown]
  - Malaise [Unknown]
  - Chest pain [Unknown]
  - Faeces discoloured [Unknown]

NARRATIVE: CASE EVENT DATE: 20151002
